FAERS Safety Report 22246725 (Version 2)
Quarter: 2023Q2

REPORT INFORMATION
  Report Type: Report from Study
  Country: US (occurrence: US)
  Receive Date: 20230424
  Receipt Date: 20230426
  Transmission Date: 20230722
  Serious: No
  Sender: FDA-Public Use
  Company Number: US-002147023-NVSC2023US091727

PATIENT
  Sex: Female
  Weight: 90.703 kg

DRUGS (3)
  1. COSENTYX [Suspect]
     Active Substance: SECUKINUMAB
     Indication: Psoriasis
     Dosage: 300 MG
     Route: 058
  2. METHOTREXATE [Suspect]
     Active Substance: METHOTREXATE
     Indication: Psoriasis
     Dosage: UNK
     Route: 065
  3. SUMATRIPTAN [Suspect]
     Active Substance: SUMATRIPTAN
     Indication: Psoriasis
     Dosage: 10 MG
     Route: 065

REACTIONS (8)
  - Mean cell haemoglobin concentration decreased [Unknown]
  - Red cell distribution width increased [Unknown]
  - Blood glucose increased [Unknown]
  - Blood urea nitrogen/creatinine ratio increased [Unknown]
  - Hepatitis B surface antibody positive [Unknown]
  - Contraindicated product administered [Unknown]
  - Treatment failure [Unknown]
  - Product use in unapproved indication [Unknown]
